FAERS Safety Report 5079541-2 (Version None)
Quarter: 2006Q3

REPORT INFORMATION
  Report Type: 
  Country: None (occurrence: None)
  Receive Date: 20060814
  Receipt Date: 20060505
  Transmission Date: 20061208
  Serious: No
  Sender: FDA-Public Use
  Company Number: US-BRISTOL-MYERS SQUIBB COMPANY-13370721

PATIENT
  Age: 36 Year
  Sex: Female
  Weight: 118 kg

DRUGS (5)
  1. GLYBURIDE + METFORMIN HCL TABS [Suspect]
     Indication: DIABETES MELLITUS NON-INSULIN-DEPENDENT
     Dosage: ONE DOSAGE FORM = 5MG/500 MG
  2. METFORMIN HYDROCHLORIDE [Suspect]
     Dates: end: 20060505
  3. AVANDIA [Concomitant]
  4. GARLIC [Concomitant]
  5. CRYSELLE [Concomitant]

REACTIONS (4)
  - BLOOD GLUCOSE DECREASED [None]
  - BLOOD GLUCOSE INCREASED [None]
  - DIARRHOEA [None]
  - STOMACH DISCOMFORT [None]
